FAERS Safety Report 14340342 (Version 1)
Quarter: 2018Q1

REPORT INFORMATION
  Report Type: Report from Study
  Country: FR (occurrence: FR)
  Receive Date: 20180101
  Receipt Date: 20180101
  Transmission Date: 20180509
  Serious: Yes (Other)
  Sender: FDA-Public Use
  Company Number: FR-ROCHE-2037393

PATIENT

DRUGS (1)
  1. TOCILIZUMAB. [Suspect]
     Active Substance: TOCILIZUMAB
     Indication: RHEUMATOID ARTHRITIS
     Route: 042

REACTIONS (11)
  - Hepatocellular injury [Unknown]
  - Drug ineffective [Unknown]
  - Infusion related reaction [Unknown]
  - Rash [Unknown]
  - Neutropenia [Unknown]
  - Breast neoplasm [Unknown]
  - Thrombocytopenia [Unknown]
  - Ischaemic cardiomyopathy [Unknown]
  - Colon neoplasm [Unknown]
  - Headache [Unknown]
  - Nausea [Unknown]
